FAERS Safety Report 7405591-4 (Version None)
Quarter: 2011Q2

REPORT INFORMATION
  Report Type: 
  Country: None (occurrence: None)
  Receive Date: 20110411
  Receipt Date: 20110329
  Transmission Date: 20111010
  Serious: Yes (Other)
  Sender: FDA-Public Use
  Company Number: PHHY2011JP25419

PATIENT
  Sex: Male
  Weight: 54 kg

DRUGS (38)
  1. SIGMART [Concomitant]
     Dosage: 15 MG, UNK
     Route: 048
  2. RED BLOOD CELLS, CONCENTRATED [Concomitant]
     Dosage: 2 UNITS, UNK
     Dates: start: 20110131
  3. EXJADE [Suspect]
     Indication: IRON OVERLOAD
     Dosage: 500 MG, DAILY
     Route: 048
     Dates: start: 20100705, end: 20100805
  4. ARTIST [Concomitant]
     Dosage: 2.5 MG, UNK
     Route: 048
  5. RED BLOOD CELLS, CONCENTRATED [Concomitant]
     Dosage: 2 UNITS, UNK
     Dates: start: 20100818
  6. RED BLOOD CELLS, CONCENTRATED [Concomitant]
     Dosage: 2 UNITS, UNK
     Dates: start: 20101108
  7. RED BLOOD CELLS, CONCENTRATED [Concomitant]
     Dosage: 2 UNITS, UNK
     Dates: start: 20101129
  8. RED BLOOD CELLS, CONCENTRATED [Concomitant]
     Dosage: 2 UNITS, UNK
     Dates: start: 20101208
  9. RED BLOOD CELLS, CONCENTRATED [Concomitant]
     Dosage: 2 UNITS, UNK
     Dates: start: 20101112
  10. RED BLOOD CELLS, CONCENTRATED [Concomitant]
     Dosage: 2 UNITS, UNK
     Dates: start: 20110105
  11. RED BLOOD CELLS, CONCENTRATED [Concomitant]
     Dosage: 2 UNITS, UNK
     Dates: start: 20110128
  12. ASPIRIN [Concomitant]
     Dosage: 100 MG, UNK
     Route: 048
  13. THYRADIN S [Concomitant]
     Dosage: 50 UG, UNK
     Route: 048
  14. RED BLOOD CELLS, CONCENTRATED [Concomitant]
     Dosage: 2 UNITS, UNK
     Dates: start: 20101124
  15. RED BLOOD CELLS, CONCENTRATED [Concomitant]
     Dosage: 2 UNITS, UNK
     Dates: start: 20101213
  16. TAKEPRON [Concomitant]
     Dosage: 15 MG, UNK
     Route: 048
  17. ALLEGRA [Concomitant]
     Dosage: 120 MG, UNK
     Route: 048
  18. RED BLOOD CELLS, CONCENTRATED [Concomitant]
     Dosage: 2 UNITS, UNK
     Dates: start: 20100712
  19. RED BLOOD CELLS, CONCENTRATED [Concomitant]
     Dosage: 2 UNITS, UNK
     Dates: start: 20100922
  20. RED BLOOD CELLS, CONCENTRATED [Concomitant]
     Dosage: 2 UNITS, UNK
     Dates: start: 20101014
  21. RED BLOOD CELLS, CONCENTRATED [Concomitant]
     Dosage: 2 UNITS, UNK
     Dates: start: 20101029
  22. RED BLOOD CELLS, CONCENTRATED [Concomitant]
     Dosage: 2 UNITS, UNK
     Dates: start: 20101210
  23. ITOROL [Concomitant]
     Dosage: 40 MG, UNK
     Route: 048
  24. MIDODRINE HYDROCHLORIDE [Concomitant]
     Dosage: 8 MG, UNK
     Route: 048
  25. RED BLOOD CELLS, CONCENTRATED [Concomitant]
     Dosage: 2 UNITS, UNK
     Dates: start: 20100728
  26. RED BLOOD CELLS, CONCENTRATED [Concomitant]
     Dosage: 2 UNITS, UNK
     Dates: start: 20100920
  27. RED BLOOD CELLS, CONCENTRATED [Concomitant]
     Dosage: 2 UNITS, UNK
     Dates: start: 20101126
  28. RED BLOOD CELLS, CONCENTRATED [Concomitant]
     Dosage: 2 UNITS, UNK
     Dates: start: 20110119
  29. CARTOL [Concomitant]
     Dosage: 0.25 UG, UNK
     Route: 048
  30. AMEZINIUM METILSULFATE [Concomitant]
     Dosage: 20 MG, UNK
     Route: 048
  31. GASMOTIN [Concomitant]
     Dosage: 15 MG, UNK
     Route: 048
  32. RED BLOOD CELLS, CONCENTRATED [Concomitant]
     Dosage: 2 UNITS, UNK
     Dates: start: 20100709
  33. RED BLOOD CELLS, CONCENTRATED [Concomitant]
     Dosage: 2 UNITS, UNK
     Dates: start: 20101013
  34. RED BLOOD CELLS, CONCENTRATED [Concomitant]
     Dosage: 2 UNITS, UNK
     Dates: start: 20101027
  35. RED BLOOD CELLS, CONCENTRATED [Concomitant]
     Dosage: 2 UNITS, UNK
     Dates: start: 20110103
  36. EXJADE [Suspect]
     Dosage: 1000 MG, DAILY
     Route: 048
     Dates: start: 20100806, end: 20101110
  37. MUCOSTA [Concomitant]
     Dosage: 300 MG, UNK
     Route: 048
  38. RED BLOOD CELLS, CONCENTRATED [Concomitant]
     Dosage: 2 UNITS, UNK
     Dates: start: 20100720

REACTIONS (4)
  - CARDIAC FAILURE [None]
  - MALNUTRITION [None]
  - RENAL FAILURE CHRONIC [None]
  - GENERAL PHYSICAL HEALTH DETERIORATION [None]
